FAERS Safety Report 24681865 (Version 3)
Quarter: 2025Q3

REPORT INFORMATION
  Report Type: Spontaneous
  Country: CN (occurrence: CN)
  Receive Date: 20241130
  Receipt Date: 20250809
  Transmission Date: 20251020
  Serious: Yes (Other)
  Sender: ALEXION PHARMACEUTICALS
  Company Number: CN-ASTRAZENECA-202411CHN016525CN

PATIENT
  Age: 57 Year
  Sex: Male
  Weight: 67.5 kg

DRUGS (6)
  1. DAPAGLIFLOZIN [Suspect]
     Active Substance: DAPAGLIFLOZIN
     Indication: Diabetes mellitus
     Dosage: 10 MILLIGRAM, QD
     Dates: start: 20230701, end: 20241115
  2. DULAGLUTIDE [Suspect]
     Active Substance: DULAGLUTIDE
     Indication: Diabetes mellitus
     Dosage: 1.5 MILLIGRAM, QW
     Dates: start: 202111, end: 20241113
  3. Glutathione abbott [Concomitant]
     Indication: Renal disorder
     Dosage: 1.2 GRAM, QD
     Route: 065
  4. KERENDIA [Concomitant]
     Active Substance: FINERENONE
     Indication: Renal disorder
     Dosage: 20 MILLIGRAM, QD
     Route: 065
  5. Febuxostat accord [Concomitant]
     Indication: Renal disorder
     Dosage: 40 MILLIGRAM, QOD
     Route: 065
  6. DILTIAZEM HYDROCHLORIDE [Concomitant]
     Active Substance: DILTIAZEM HYDROCHLORIDE
     Indication: Blood pressure management
     Dosage: 60 MILLIGRAM, QD

REACTIONS (1)
  - Renal failure [Recovering/Resolving]

NARRATIVE: CASE EVENT DATE: 20241114
